FAERS Safety Report 21969363 (Version 1)
Quarter: 2023Q1

REPORT INFORMATION
  Report Type: Report from Study
  Country: US (occurrence: US)
  Receive Date: 20230208
  Receipt Date: 20230208
  Transmission Date: 20230417
  Serious: Yes (Other)
  Sender: FDA-Public Use
  Company Number: US-GILEAD-2023-0615232

PATIENT
  Age: 34 Year
  Sex: Female

DRUGS (30)
  1. REMDESIVIR [Suspect]
     Active Substance: REMDESIVIR
     Indication: COVID-19
     Dosage: UNK
     Route: 065
     Dates: start: 20211215, end: 20211219
  2. CYPROHEPTADINE [Suspect]
     Active Substance: CYPROHEPTADINE
     Indication: COVID-19
     Dosage: UNK
     Route: 065
  3. ATROVENT [Concomitant]
     Active Substance: IPRATROPIUM BROMIDE
  4. XOPENEX [Concomitant]
     Active Substance: LEVALBUTEROL HYDROCHLORIDE
  5. HEPARIN [Concomitant]
     Active Substance: HEPARIN SODIUM
  6. MAGNESIUM SULFATE [Concomitant]
     Active Substance: MAGNESIUM SULFATE
  7. PROPOFOL [Concomitant]
     Active Substance: PROPOFOL
  8. PIPERACILLIN AND TAZOBACTAM [Concomitant]
     Active Substance: PIPERACILLIN SODIUM\TAZOBACTAM SODIUM
  9. HUMALOG [Concomitant]
     Active Substance: INSULIN LISPRO
  10. PRECEDEX [Concomitant]
     Active Substance: DEXMEDETOMIDINE HYDROCHLORIDE
  11. TYLENOL [Concomitant]
     Active Substance: ACETAMINOPHEN
  12. LEVOPHED [Concomitant]
     Active Substance: NOREPINEPHRINE BITARTRATE
  13. PEPCID [Concomitant]
     Active Substance: FAMOTIDINE
  14. ROXICODONE [Concomitant]
     Active Substance: OXYCODONE HYDROCHLORIDE
  15. COLACE [Concomitant]
     Active Substance: DOCUSATE SODIUM
  16. PAROEX [Concomitant]
     Active Substance: CHLORHEXIDINE GLUCONATE
  17. PULMICORT TURBUHALER [Concomitant]
     Active Substance: BUDESONIDE
  18. PROTEIN [Concomitant]
     Active Substance: PROTEIN
  19. DECADRON [Concomitant]
     Active Substance: DEXAMETHASONE
  20. MIRALAX [Concomitant]
     Active Substance: POLYETHYLENE GLYCOL 3350
  21. ASPIRIN [Concomitant]
     Active Substance: ASPIRIN
  22. HUMAN PLASMA [Concomitant]
     Active Substance: HUMAN PLASMA
  23. HUMAN RED BLOOD CELL [Concomitant]
     Active Substance: HUMAN RED BLOOD CELL
  24. ZOFRAN [Concomitant]
     Active Substance: ONDANSETRON HYDROCHLORIDE
  25. PLASMALYTE A [Concomitant]
  26. EFFER-K UNFLAVORED [Concomitant]
     Active Substance: POTASSIUM BICARBONATE
  27. LASIX [Concomitant]
     Active Substance: FUROSEMIDE
  28. POTASSIUM CHLORIDE [Concomitant]
     Active Substance: POTASSIUM CHLORIDE
  29. ZYVOX [Concomitant]
     Active Substance: LINEZOLID
  30. ALBUMINAR [Concomitant]
     Active Substance: ALBUMIN HUMAN

REACTIONS (6)
  - Cytokine release syndrome [Unknown]
  - Delirium [Recovered/Resolved]
  - Leukocytosis [Recovered/Resolved]
  - Immune system disorder [Recovered/Resolved]
  - Hypoxia [Recovered/Resolved with Sequelae]
  - Hypotension [Recovered/Resolved]

NARRATIVE: CASE EVENT DATE: 20211215
